FAERS Safety Report 5243283-0 (Version None)
Quarter: 2007Q1

REPORT INFORMATION
  Report Type: 
  Country: None (occurrence: None)
  Receive Date: 20070215
  Receipt Date: 20061127
  Transmission Date: 20070707
  Serious: Yes (Other)
  Sender: FDA-Public Use
  Company Number: 2006SP008223

PATIENT
  Age: 57 Year
  Sex: Male

DRUGS (2)
  1. NASONEX [Suspect]
     Indication: SINUSITIS
     Dosage: SEE IMAGE
     Dates: start: 20061001
  2. NASONEX [Suspect]
     Indication: SINUSITIS
     Dosage: SEE IMAGE
     Dates: start: 20061001

REACTIONS (1)
  - ANOSMIA [None]
